FAERS Safety Report 9032973 (Version 1)
Quarter: 2013Q1

REPORT INFORMATION
  Report Type: Spontaneous
  Country: US (occurrence: None)
  Receive Date: 20130110
  Receipt Date: 20130110
  Transmission Date: 20140127
  Serious: Yes (Other)
  Sender: FDA-Public Use
  Company Number: UTC-027276

PATIENT
  Sex: 0

DRUGS (1)
  1. TYVASO [Suspect]

REACTIONS (1)
  - Device battery issue [None]
